FAERS Safety Report 15402825 (Version 8)
Quarter: 2019Q1

REPORT INFORMATION
  Report Type: Report from Study
  Country: None (occurrence: BE)
  Receive Date: 20180919
  Receipt Date: 20190130
  Transmission Date: 20190417
  Serious: Yes (Hospitalization)
  Sender: FDA-Public Use
  Company Number: BE-ABBVIE-18S-013-2490629-00

PATIENT
  Sex: Male

DRUGS (4)
  1. DUODOPA [Suspect]
     Active Substance: CARBIDOPA\LEVODOPA
     Dosage: MD=3ML, CD=2.5(AM)-3(PM)ML/HR DURING 16HRS, ED=BETWEEN 2 AND 3ML, ND=2.5ML/HR DURING 8HRS
     Route: 050
     Dates: start: 20180914, end: 20190124
  2. DUODOPA [Suspect]
     Active Substance: CARBIDOPA\LEVODOPA
     Dosage: MD= 5ML CD= 2.7ML/HR DURING 16HRS ED= 2ML ND= 2.7ML/HR DURING 8HRS
     Route: 050
     Dates: start: 20190124
  3. DUODOPA [Suspect]
     Active Substance: CARBIDOPA\LEVODOPA
     Indication: PARKINSON^S DISEASE
     Dosage: MD=6.1ML, CD=BETWEEN 2.6 AND 4ML/HR DURING 16HRS, ED=BETWEEN 2AND3ML
     Route: 050
     Dates: start: 20171002, end: 20180629
  4. DUODOPA [Suspect]
     Active Substance: CARBIDOPA\LEVODOPA
     Dosage: DOSES CONTINUOUSLY MONITORED AND ADAPTED
     Route: 050
     Dates: start: 20180629, end: 20180914

REACTIONS (4)
  - Stoma site infection [Unknown]
  - Diverticulitis [Not Recovered/Not Resolved]
  - Stoma site hypergranulation [Not Recovered/Not Resolved]
  - Abscess intestinal [Not Recovered/Not Resolved]
